FAERS Safety Report 22061478 (Version 1)
Quarter: 2023Q1

REPORT INFORMATION
  Report Type: Report from Study
  Country: HU (occurrence: HU)
  Receive Date: 20230304
  Receipt Date: 20230304
  Transmission Date: 20230417
  Serious: Yes (Hospitalization)
  Sender: FDA-Public Use
  Company Number: HU-ABBVIE-22K-076-4529409-00

PATIENT
  Sex: Male

DRUGS (30)
  1. CARBIDOPA\LEVODOPA [Suspect]
     Active Substance: CARBIDOPA\LEVODOPA
     Indication: Parkinson^s disease
     Dosage: MORNING DOSE: 6.0 ML; CONTINUOUS DOSE: 4.2 ML/HOUR; EXTRA DOSE: 3.0 ML
     Route: 050
     Dates: start: 20130328
  2. CARBIDOPA\LEVODOPA [Suspect]
     Active Substance: CARBIDOPA\LEVODOPA
     Dosage: MORNING DOSE: 9.5 ML; CONTINUOUS DOSE: 3.5 / 4.8 ML PER HOUR; EXTRA DOSE: 3.5 ML
     Route: 050
     Dates: start: 20140201, end: 20220919
  3. NITRODERM [Concomitant]
     Active Substance: NITROGLYCERIN
     Indication: Product used for unknown indication
     Dosage: 5 MILLIGRAM
     Route: 062
     Dates: start: 201702
  4. gabapentin (Gordius) [Concomitant]
     Indication: Product used for unknown indication
     Dosage: TIME INTERVAL: 0.33333333 DAYS: 900 MILLIGRAM
     Route: 048
  5. ASPIRIN [Concomitant]
     Active Substance: ASPIRIN
     Indication: Product used for unknown indication
     Dosage: 100 MILLIGRAM
     Route: 048
  6. MIDERIZONE [Concomitant]
     Indication: Product used for unknown indication
     Dosage: 300 MILLIGRAM
     Route: 048
     Dates: start: 201203
  7. .ALPHA.-LIPOIC ACID [Concomitant]
     Active Substance: .ALPHA.-LIPOIC ACID
     Indication: Product used for unknown indication
     Dosage: 600 MILLIGRAM
     Route: 048
     Dates: start: 2017
  8. FAMOTIDINE [Concomitant]
     Active Substance: FAMOTIDINE
     Indication: Gastrooesophageal reflux disease
     Dosage: 40 MILLIGRAM IN 0.5 DAYS
     Route: 048
     Dates: start: 1997
  9. PANTOPRAZOLE SODIUM [Concomitant]
     Active Substance: PANTOPRAZOLE SODIUM
     Indication: Product used for unknown indication
     Dosage: 40 MILLIGRAM
     Route: 048
     Dates: start: 2012
  10. TRAZODONE HYDROCHLORIDE [Concomitant]
     Active Substance: TRAZODONE HYDROCHLORIDE
     Indication: Anxiety
     Dosage: 1 TABLET IN THE EVENING/FORM STRENGTH: 600 MG
     Route: 048
     Dates: start: 20190528
  11. DOMPERIDONE [Concomitant]
     Active Substance: DOMPERIDONE
     Indication: Product used for unknown indication
     Dosage: TIME INTERVAL: 0.33333333 DAYS: 30 MILLIGRAM
     Route: 048
  12. ZOPIGEN [Concomitant]
     Indication: Sleep disorder
     Dosage: 1 TABLET IN THE EVENING
     Route: 048
     Dates: start: 2008
  13. RIVOTRIL [Concomitant]
     Active Substance: CLONAZEPAM
     Indication: Product used for unknown indication
     Dosage: 1 MILLIGRAM
     Route: 048
     Dates: start: 2012
  14. CLOZAPINE [Concomitant]
     Active Substance: CLOZAPINE
     Indication: Hallucination
     Dosage: 1 TABLET IN THE EVENING
     Route: 048
     Dates: start: 202201
  15. Ashfort amiloride/hydrochlorothiazide [Concomitant]
     Indication: Product used for unknown indication
     Dosage: 50 MG HYDROCHLOROTIATIDE, 5 MG AMILORIDE / TABLET
     Route: 048
     Dates: start: 2013
  16. PERINDOPRIL [Concomitant]
     Active Substance: PERINDOPRIL
     Indication: Hypertension
     Route: 048
     Dates: start: 2015
  17. TAMSULOSIN [Concomitant]
     Active Substance: TAMSULOSIN
     Indication: Product used for unknown indication
     Dosage: 0.4 MILLIGRAM
     Route: 048
  18. CARBIDOPA\ENTACAPONE\LEVODOPA [Concomitant]
     Active Substance: CARBIDOPA\ENTACAPONE\LEVODOPA
     Indication: Parkinson^s disease
     Dosage: 200 MG LEVODOPA, 50 MG CARBIDOPA AND 200 MG ENTACAPONE / TABLET, 1 TABLET AT NIGHT
     Route: 048
     Dates: start: 2016
  19. CARBIDOPA\ENTACAPONE\LEVODOPA [Concomitant]
     Active Substance: CARBIDOPA\ENTACAPONE\LEVODOPA
     Indication: Parkinson^s disease
     Dosage: 150 MG LEVODOPA, 37.5 MG CARBIDOPA AND 200 MG ENTACAPONE / TABLET
     Route: 048
     Dates: start: 20220919
  20. METFORMIN HYDROCHLORIDE [Concomitant]
     Active Substance: METFORMIN HYDROCHLORIDE
     Indication: Product used for unknown indication
     Dosage: 2000 MILLIGRAM
     Route: 048
  21. HYDROCHLOROTHIAZIDE [Concomitant]
     Active Substance: HYDROCHLOROTHIAZIDE
     Indication: Product used for unknown indication
     Dosage: 25 MILLIGRAM
     Route: 048
  22. STALEVO [Concomitant]
     Active Substance: CARBIDOPA\ENTACAPONE\LEVODOPA
     Indication: Product used for unknown indication
     Dosage: 150 MG LEVODOPA; 37.5 MG CARBIDOPA; 200 MG ENTACAPONE / TABLET
     Route: 048
  23. MELOXICAM [Concomitant]
     Active Substance: MELOXICAM
     Indication: Product used for unknown indication
     Dosage: 15 MILLIGRAM
     Route: 048
  24. ALMOWILL DUO [Concomitant]
     Indication: Product used for unknown indication
     Dosage: 875 MG AMOXICILLIN, 125 MG CLAVULANIC ACID / TABLET
     Route: 048
     Dates: start: 20220915, end: 20220925
  25. PREGABALIN [Concomitant]
     Active Substance: PREGABALIN
     Indication: Product used for unknown indication
     Dosage: 300 MILLIGRAM
     Route: 048
     Dates: start: 20220203
  26. PREGABALIN [Concomitant]
     Active Substance: PREGABALIN
     Indication: Product used for unknown indication
     Dosage: 150 MILLIGRAM
     Route: 048
     Dates: start: 20220126, end: 20220202
  27. ALLOPURINOL [Concomitant]
     Active Substance: ALLOPURINOL
     Indication: Product used for unknown indication
     Dosage: 300 MILLIGRAM
     Route: 048
  28. BISOPROLOL [Concomitant]
     Active Substance: BISOPROLOL
     Indication: Product used for unknown indication
     Dosage: 5 MILLIGRAM/HALF TABLET DAILY
     Route: 048
  29. ENOXAPARIN SODIUM [Concomitant]
     Active Substance: ENOXAPARIN SODIUM
     Indication: Product used for unknown indication
     Dosage: 4000 NE (40 MG)/0.4 ML  /AMPOULE
     Route: 058
     Dates: start: 20220612
  30. Bezalip retard [Concomitant]
     Indication: Product used for unknown indication
     Dosage: 200 MILLIGRAM
     Route: 048
     Dates: start: 201702

REACTIONS (9)
  - Parkinson^s disease [Not Recovered/Not Resolved]
  - Stoma site discharge [Unknown]
  - Stoma site inflammation [Recovering/Resolving]
  - Stoma site discharge [Recovered/Resolved]
  - Dyskinesia [Recovered/Resolved]
  - Cognitive disorder [Not Recovered/Not Resolved]
  - Overdose [Unknown]
  - Device kink [Recovered/Resolved]
  - Embedded device [Unknown]

NARRATIVE: CASE EVENT DATE: 20190401
